FAERS Safety Report 18889361 (Version 1)
Quarter: 2021Q1

REPORT INFORMATION
  Report Type: Spontaneous
  Country: US (occurrence: US)
  Receive Date: 20210213
  Receipt Date: 20210213
  Transmission Date: 20210420
  Serious: No
  Sender: FDA-Public Use
  Company Number: US-ALKEM LABORATORIES LIMITED-US-ALKEM-2020-08488

PATIENT
  Age: 71 Year
  Sex: Female
  Weight: 73.48 kg

DRUGS (4)
  1. GABAPENTIN. [Suspect]
     Active Substance: GABAPENTIN
     Indication: INTERVERTEBRAL DISC DISORDER
     Dosage: 400 MG IN THE MORNING, NOON AND 4 PM
     Route: 048
     Dates: start: 2017
  2. PULMOCORT [Concomitant]
     Indication: HYPERSENSITIVITY
     Dosage: 2 INHALATIONS TWICE DAILY
     Route: 065
     Dates: start: 202009
  3. GABAPENTIN. [Suspect]
     Active Substance: GABAPENTIN
     Dosage: 1600 MG AT BEDTIME
     Route: 048
     Dates: start: 2017
  4. PREGABALIN. [Suspect]
     Active Substance: PREGABALIN
     Indication: INTERVERTEBRAL DISC DISORDER
     Dosage: 150 MILLIGRAM (TWICE DAILY)
     Route: 048
     Dates: start: 201912

REACTIONS (2)
  - Somnolence [Unknown]
  - Product use in unapproved indication [Unknown]

NARRATIVE: CASE EVENT DATE: 2020
